FAERS Safety Report 12971349 (Version 2)
Quarter: 2016Q4

REPORT INFORMATION
  Report Type: Spontaneous
  Country: US (occurrence: US)
  Receive Date: 20161123
  Receipt Date: 20161128
  Transmission Date: 20170207
  Serious: No
  Sender: FDA-Public Use
  Company Number: US-JAZZ-2016-US-019119

PATIENT
  Age: 22 Year
  Sex: Female

DRUGS (10)
  1. XYREM [Suspect]
     Active Substance: SODIUM OXYBATE
     Indication: NARCOLEPSY
     Dosage: 2.25 G, BID
     Route: 048
     Dates: start: 20160925, end: 20160929
  2. NUVARING [Concomitant]
     Active Substance: ETHINYL ESTRADIOL\ETONOGESTREL
  3. PROBIOTIC ACIDOPHILUS              /00079701/ [Concomitant]
     Active Substance: LACTOBACILLUS ACIDOPHILUS
  4. KLONOPIN [Concomitant]
     Active Substance: CLONAZEPAM
  5. MULTIVITAMINS WITH IRON            /01824901/ [Concomitant]
  6. BCAA                               /00847901/ [Concomitant]
  7. MAGNESIUM OXIDE. [Concomitant]
     Active Substance: MAGNESIUM OXIDE
  8. XYREM [Suspect]
     Active Substance: SODIUM OXYBATE
     Indication: CATAPLEXY
     Dosage: 3 G, BID
     Route: 048
     Dates: start: 20160929
  9. EVEKEO [Concomitant]
     Active Substance: AMPHETAMINE SULFATE
  10. FOCALIN XR                           /01611102/ [Concomitant]

REACTIONS (2)
  - Feeling abnormal [Unknown]
  - Performance status decreased [Unknown]

NARRATIVE: CASE EVENT DATE: 20160928
